FAERS Safety Report 5247699-8 (Version None)
Quarter: 2007Q1

REPORT INFORMATION
  Report Type: 
  Country: None (occurrence: None)
  Receive Date: 20070220
  Receipt Date: 20070202
  Transmission Date: 20070707
  Serious: Yes (Disabling)
  Sender: FDA-Public Use
  Company Number: DSA_22893_2003

PATIENT
  Age: 44 Year
  Sex: Female

DRUGS (3)
  1. VASOTEC [Suspect]
     Indication: HYPERTENSION
     Dosage: 10 MG QD PO
     Route: 048
     Dates: start: 19910101, end: 19950101
  2. PROCARDIA [Concomitant]
  3. OTHER UNSPECIFIED MEDICATION [Concomitant]

REACTIONS (17)
  - AMNESIA [None]
  - COUGH [None]
  - DEPRESSION [None]
  - DIZZINESS [None]
  - FEELING ABNORMAL [None]
  - FLUSHING [None]
  - HYPOTENSION [None]
  - LIBIDO INCREASED [None]
  - MENTAL DISORDER [None]
  - NASOPHARYNGITIS [None]
  - NIGHT SWEATS [None]
  - OEDEMA PERIPHERAL [None]
  - POSTNASAL DRIP [None]
  - PYREXIA [None]
  - RHINITIS ALLERGIC [None]
  - SWELLING FACE [None]
  - VISION BLURRED [None]
